FAERS Safety Report 6120578-X (Version None)
Quarter: 2009Q1

REPORT INFORMATION
  Report Type: 
  Country: None (occurrence: None)
  Receive Date: 20090312
  Receipt Date: 20090312
  Transmission Date: 20090719
  Serious: Yes (Hospitalization)
  Sender: FDA-Public Use
  Company Number: None

PATIENT
  Age: 60 Year
  Sex: Male

DRUGS (1)
  1. ADENOSINE [Suspect]
     Indication: CARDIAC STRESS TEST
     Dates: start: 20080725, end: 20080725

REACTIONS (2)
  - BRONCHOSPASM [None]
  - RESPIRATORY DEPRESSION [None]
